FAERS Safety Report 5001028-3 (Version None)
Quarter: 2006Q2

REPORT INFORMATION
  Report Type: 
  Country: None (occurrence: None)
  Receive Date: 20060512
  Receipt Date: 20060509
  Transmission Date: 20061013
  Serious: Yes (Congenital Anomaly, Other)
  Sender: FDA-Public Use
  Company Number: US-GLAXOSMITHKLINE-A0605284A

PATIENT
  Sex: Female
  Weight: 3.5 kg

DRUGS (2)
  1. LAMOTRIGINE [Suspect]
     Indication: MATERNAL CONDITION AFFECTING FOETUS
     Route: 048
  2. ANTIBIOTIC [Concomitant]

REACTIONS (5)
  - ATRIAL SEPTAL DEFECT [None]
  - CARDIAC MURMUR [None]
  - DRUG EXPOSURE DURING PREGNANCY [None]
  - DRUG EXPOSURE VIA BREAST MILK [None]
  - VENTRICULAR SEPTAL DEFECT [None]
